FAERS Safety Report 4578974-8 (Version None)
Quarter: 2005Q1

REPORT INFORMATION
  Report Type: 
  Country: None (occurrence: None)
  Receive Date: 20050211
  Receipt Date: 20040428
  Transmission Date: 20050727
  Serious: Yes (Death, Hospitalization)
  Sender: FDA-Public Use
  Company Number: US-MERCK-0404USA02515

PATIENT
  Age: 60 Year
  Sex: Female
  Weight: 80 kg

DRUGS (10)
  1. VIOXX [Suspect]
     Indication: ARTHRITIS
     Route: 048
     Dates: start: 20010706, end: 20020405
  2. PREMARIN [Concomitant]
     Route: 065
     Dates: start: 20010801
  3. LIPITOR [Concomitant]
     Route: 065
     Dates: start: 20010901
  4. ATIVAN [Concomitant]
     Route: 065
     Dates: start: 20010701
  5. ALEVE [Concomitant]
     Route: 065
  6. ECOTRIN [Concomitant]
     Route: 065
  7. VITAMINS (UNSPECIFIED) [Concomitant]
     Route: 065
  8. ALBUTEROL [Concomitant]
     Route: 065
     Dates: start: 20010501
  9. PROZAC [Concomitant]
     Route: 065
     Dates: start: 20010701
  10. ZOCOR [Concomitant]
     Route: 048
     Dates: start: 20020117

REACTIONS (9)
  - ACUTE MYOCARDIAL INFARCTION [None]
  - ACUTE RESPIRATORY FAILURE [None]
  - ANXIETY [None]
  - ARTHRITIS [None]
  - CARDIAC ARREST [None]
  - HYPOXIC ENCEPHALOPATHY [None]
  - INJURY [None]
  - TENOSYNOVITIS [None]
  - VENTRICULAR FIBRILLATION [None]
